FAERS Safety Report 9851190 (Version 1)
Quarter: 2014Q1

REPORT INFORMATION
  Report Type: Spontaneous
  Country: US (occurrence: US)
  Receive Date: 20140128
  Receipt Date: 20140128
  Transmission Date: 20141002
  Serious: Yes (Other)
  Sender: FDA-Public Use
  Company Number: US-SA-2013SA123120

PATIENT
  Age: 50 Year
  Sex: Female

DRUGS (26)
  1. LASIX [Suspect]
     Route: 065
  2. LASIX [Suspect]
     Route: 065
  3. TEFLARO [Suspect]
     Indication: STAPHYLOCOCCAL INFECTION
     Dosage: FORM - POWDER
     Route: 042
     Dates: start: 20130905
  4. TEFLARO [Suspect]
     Indication: STAPHYLOCOCCAL INFECTION
     Route: 042
  5. TEFLARO [Suspect]
     Indication: STAPHYLOCOCCAL INFECTION
     Route: 042
  6. TEFLARO [Suspect]
     Indication: STAPHYLOCOCCAL INFECTION
     Route: 042
     Dates: start: 20131105
  7. HYDROCHLOROTHIAZIDE [Concomitant]
     Route: 065
  8. PHENERGAN [Concomitant]
     Route: 065
  9. DILAUDID [Concomitant]
     Route: 065
  10. FENTANYL [Concomitant]
     Route: 062
  11. XARELTO [Concomitant]
     Route: 065
  12. SERTRALINE [Concomitant]
     Route: 065
  13. LACTOBACILLUS ACIDOPHILUS/LACTOBACILLUS BULGARICUS [Concomitant]
     Route: 065
  14. CLONIDINE [Concomitant]
     Route: 065
  15. ALBUTEROL [Concomitant]
     Route: 065
  16. OMEPRAZOLE [Concomitant]
     Route: 065
  17. NITROSTAT [Concomitant]
     Route: 065
  18. PEPCID [Concomitant]
     Route: 065
  19. XANAX [Concomitant]
     Route: 065
  20. SEROQUEL [Concomitant]
     Route: 065
  21. AMLODIPINE [Concomitant]
     Route: 065
  22. SOMA [Concomitant]
     Route: 065
  23. COREG [Concomitant]
     Route: 065
  24. MIRTAZAPINE [Concomitant]
     Route: 065
  25. MINOXIDIL [Concomitant]
     Route: 065
  26. MECLOZINE [Concomitant]
     Route: 065

REACTIONS (2)
  - Anaemia [Recovering/Resolving]
  - Renal failure acute [Recovering/Resolving]
